FAERS Safety Report 8247461-8 (Version None)
Quarter: 2012Q1

REPORT INFORMATION
  Report Type: 
  Country: None (occurrence: None)
  Receive Date: 20120330
  Receipt Date: 20120323
  Transmission Date: 20120608
  Serious: Yes (Other)
  Sender: FDA-Public Use
  Company Number: US-UCBSA-054044

PATIENT
  Age: 81 Year
  Sex: Female
  Weight: 48.08 kg

DRUGS (3)
  1. CIMZIA [Suspect]
     Indication: RHEUMATOID ARTHRITIS
     Route: 058
     Dates: start: 20120101
  2. PRADAXA [Concomitant]
     Indication: ATRIAL FIBRILLATION
     Dosage: 2 PILLS A DAY; 1 IN THE AM AND 1 IN THE PM
  3. TYLENOL [Concomitant]

REACTIONS (1)
  - GLAUCOMA [None]
